FAERS Safety Report 17718053 (Version 2)
Quarter: 2020Q2

REPORT INFORMATION
  Report Type: Spontaneous
  Country: JP (occurrence: JP)
  Receive Date: 20200428
  Receipt Date: 20200501
  Transmission Date: 20200714
  Serious: Yes (Other)
  Sender: FDA-Public Use
  Company Number: NVSC2020JP108732

PATIENT
  Age: 67 Year
  Sex: Female

DRUGS (4)
  1. ARGATROBAN. [Suspect]
     Active Substance: ARGATROBAN
     Indication: EMBOLISM
     Dosage: 60 MG, QD
     Route: 042
  2. ARGATROBAN. [Suspect]
     Active Substance: ARGATROBAN
     Dosage: 25 MG, QD
     Route: 042
  3. ARGATROBAN. [Suspect]
     Active Substance: ARGATROBAN
     Dosage: 50 MG, QD, ON DAY 28
     Route: 042
  4. HEPARIN [Suspect]
     Active Substance: HEPARIN SODIUM
     Indication: EMBOLISM
     Dosage: 100000 UNK, QD, ON DAY 20
     Route: 042

REACTIONS (3)
  - Cerebral infarction [Recovered/Resolved]
  - Acute myocardial infarction [Unknown]
  - Bleeding time prolonged [Unknown]
